FAERS Safety Report 7950809-2 (Version None)
Quarter: 2011Q4

REPORT INFORMATION
  Report Type: 
  Country: None (occurrence: None)
  Receive Date: 20111125
  Receipt Date: 20111111
  Transmission Date: 20120403
  Serious: Yes (Hospitalization, Other)
  Sender: FDA-Public Use
  Company Number: US-1189079

PATIENT
  Age: 70 Year
  Sex: Female

DRUGS (6)
  1. BUPROPION HCL [Concomitant]
  2. HYDROCHLOROTHIAZIDE [Concomitant]
  3. BRIMONIDINE TARTRATE [Concomitant]
  4. TIMOLOL MALEATE [Suspect]
     Indication: OPEN ANGLE GLAUCOMA
     Dosage: OPHTHALMIC
     Route: 047
  5. LISINOPRIL [Concomitant]
  6. SIMVASTATIN [Concomitant]

REACTIONS (5)
  - BRADYCARDIA [None]
  - PALPITATIONS [None]
  - ATRIOVENTRICULAR BLOCK [None]
  - DYSPNOEA [None]
  - SICK SINUS SYNDROME [None]
